FAERS Safety Report 14017773 (Version 1)
Quarter: 2017Q3

REPORT INFORMATION
  Report Type: Spontaneous
  Country: US (occurrence: None)
  Receive Date: 20170927
  Receipt Date: 20170927
  Transmission Date: 20171128
  Serious: Yes (Life-Threatening, Hospitalization, Other)
  Sender: FDA-Public Use
  Company Number: None

PATIENT
  Age: 57 Year
  Sex: Female

DRUGS (1)
  1. BORTEZOMIB [Suspect]
     Active Substance: BORTEZOMIB
     Indication: PLASMA CELL MYELOMA
     Dosage: 2.5MG DAYS 1, 4 8, 11 X 6 CYCLES SQ
     Route: 058
     Dates: start: 20170404, end: 20170714

REACTIONS (4)
  - Ejection fraction decreased [None]
  - Pleural effusion [None]
  - Dyspnoea paroxysmal nocturnal [None]
  - Ventricular tachycardia [None]
